FAERS Safety Report 4743341-0 (Version None)
Quarter: 2005Q3

REPORT INFORMATION
  Report Type: 
  Country: None (occurrence: None)
  Receive Date: 20050809
  Receipt Date: 20050725
  Transmission Date: 20060218
  Serious: Yes (Hospitalization)
  Sender: FDA-Public Use
  Company Number: HQWYE522826JUL05

PATIENT
  Sex: Female

DRUGS (1)
  1. RAPAMUNE [Suspect]
     Indication: BONE MARROW TRANSPLANT
     Dosage: ORAL
     Route: 048

REACTIONS (4)
  - COMA [None]
  - CONVULSION [None]
  - IMMUNOSUPPRESSANT DRUG LEVEL INCREASED [None]
  - MENTAL STATUS CHANGES [None]
